FAERS Safety Report 4893771-1 (Version None)
Quarter: 2005Q4

REPORT INFORMATION
  Report Type: 
  Country: None (occurrence: None)
  Receive Date: 20051223
  Receipt Date: 20051123
  Transmission Date: 20060501
  Serious: No
  Sender: FDA-Public Use
  Company Number: 2005PV004922

PATIENT
  Age: 74 Year
  Sex: Female

DRUGS (5)
  1. SYMLIN [Suspect]
     Indication: DIABETES MELLITUS INSULIN-DEPENDENT
     Dosage: 15 MCG;TID;SC; SEE IMAGE
     Route: 058
     Dates: start: 20051111, end: 20051117
  2. SYMLIN [Suspect]
     Indication: DIABETES MELLITUS INSULIN-DEPENDENT
     Dosage: 15 MCG;TID;SC; SEE IMAGE
     Route: 058
     Dates: start: 20051117, end: 20051123
  3. SYMLIN [Suspect]
     Indication: DIABETES MELLITUS INSULIN-DEPENDENT
     Dosage: 15 MCG;TID;SC; SEE IMAGE
     Route: 058
     Dates: start: 20051123
  4. HUMALOG [Concomitant]
  5. LANTUS [Concomitant]

REACTIONS (1)
  - INJECTION SITE PAIN [None]
